FAERS Safety Report 9469401 (Version 3)
Quarter: 2015Q1

REPORT INFORMATION
  Report Type: Report from Study
  Country: US (occurrence: US)
  Receive Date: 20130821
  Receipt Date: 20150116
  Transmission Date: 20150721
  Serious: Yes (Other)
  Sender: FDA-Public Use
  Company Number: US-ROCHE-1263650

PATIENT
  Age: 39 Year
  Sex: Female
  Weight: 109.87 kg

DRUGS (4)
  1. ACTEMRA [Suspect]
     Active Substance: TOCILIZUMAB
     Indication: RHEUMATOID ARTHRITIS
     Route: 042
  2. RITUXAN [Suspect]
     Active Substance: RITUXIMAB
     Indication: RHEUMATOID ARTHRITIS
     Dosage: ON DAY 1 AND DAY 15
     Route: 042
  3. PLAQUENIL [Concomitant]
     Active Substance: HYDROXYCHLOROQUINE SULFATE
     Route: 048
  4. PREDNISONE. [Concomitant]
     Active Substance: PREDNISONE
     Route: 065
     Dates: start: 2009

REACTIONS (6)
  - Transaminases increased [Unknown]
  - Red blood cell sedimentation rate increased [Unknown]
  - Blood lactate dehydrogenase increased [Unknown]
  - Rhabdomyolysis [Unknown]
  - Hepatic enzyme increased [Unknown]
  - C-reactive protein increased [Unknown]

NARRATIVE: CASE EVENT DATE: 201302
